FAERS Safety Report 7705115-8 (Version None)
Quarter: 2011Q3

REPORT INFORMATION
  Report Type: 
  Country: None (occurrence: None)
  Receive Date: 20110824
  Receipt Date: 20110818
  Transmission Date: 20111222
  Serious: Yes (Death, Hospitalization)
  Sender: FDA-Public Use
  Company Number: US-BIOGENIDEC-2011BI011214

PATIENT
  Age: 68 Year
  Sex: Female
  Weight: 68 kg

DRUGS (31)
  1. ALENDRONATE SODIUM [Concomitant]
  2. CEPHALEXIN [Concomitant]
     Route: 048
  3. LEXAPRO [Concomitant]
     Route: 048
  4. GLUCOSAMINE CHONDROITIN [Concomitant]
  5. VITAMIN B-12 [Concomitant]
  6. MULTI-VITAMINS [Concomitant]
  7. OPCON-A [Concomitant]
  8. FOLIC ACID [Concomitant]
     Route: 048
  9. NIACIN [Concomitant]
  10. GLUCOSAMINE CHONDROITIN [Concomitant]
  11. ASCORBIC ACID [Concomitant]
  12. AMANTADINE HCL [Concomitant]
  13. ASPIRIN [Concomitant]
     Route: 048
  14. FOCALIN XR [Concomitant]
  15. ALLEGRA [Concomitant]
  16. CALCIUM PLUS D [Concomitant]
  17. FISH OIL [Concomitant]
  18. TUMERIC [Concomitant]
  19. CALCIUM PLUS D [Concomitant]
  20. CRANBERRY [Concomitant]
     Route: 048
  21. EXELON [Concomitant]
     Route: 062
  22. FISH OIL [Concomitant]
  23. FOSAMAX [Concomitant]
  24. VITAMIN D [Concomitant]
  25. VITAMIN E [Concomitant]
  26. TYSABRI [Suspect]
     Indication: MULTIPLE SCLEROSIS
     Route: 042
     Dates: start: 20090420, end: 20110214
  27. FISH OIL [Concomitant]
  28. AUGMENTIN '125' [Concomitant]
  29. MOBIC [Concomitant]
  30. GLUCOSAMINE CHONDROITIN [Concomitant]
  31. LIPITOR [Concomitant]
     Route: 048

REACTIONS (2)
  - ACUTE RESPIRATORY FAILURE [None]
  - METASTATIC NEOPLASM [None]
